FAERS Safety Report 4486939-X (Version None)
Quarter: 2004Q3

REPORT INFORMATION
  Report Type: 
  Country: None (occurrence: None)
  Receive Date: 20040921
  Receipt Date: 20031020
  Transmission Date: 20050211
  Serious: Yes (Disabling)
  Sender: FDA-Public Use
  Company Number: 163-20785-03100503

PATIENT
  Age: 51 Year
  Sex: Male

DRUGS (12)
  1. THALOMID [Suspect]
     Indication: MULTIPLE MYELOMA
     Dosage: SEE IMAGE
     Route: 048
     Dates: start: 20030213, end: 20030710
  2. THALOMID [Suspect]
     Indication: MULTIPLE MYELOMA
     Dosage: SEE IMAGE
     Route: 048
     Dates: start: 20030701, end: 20030801
  3. THALOMID [Suspect]
     Indication: MULTIPLE MYELOMA
     Dosage: SEE IMAGE
     Route: 048
     Dates: start: 20030801, end: 20031020
  4. DULCOLAC (BISACODYL) [Concomitant]
  5. TYLENOL [Concomitant]
  6. VINCRISTINE [Concomitant]
  7. ADRIAMYCIN PFS [Concomitant]
  8. DEXAMETHASONE [Concomitant]
  9. DECADRON [Concomitant]
  10. PYRIDOXINE (PYRIDOXINE) [Concomitant]
  11. B12 (CYANOCOBALAMIN) [Concomitant]
  12. FOLATE (FOLATE SODIUM) [Concomitant]

REACTIONS (8)
  - ATAXIA [None]
  - GAIT DISTURBANCE [None]
  - MUSCLE CRAMP [None]
  - NEUROPATHY [None]
  - NYSTAGMUS [None]
  - OEDEMA PERIPHERAL [None]
  - PAIN IN EXTREMITY [None]
  - VERTIGO [None]
